FAERS Safety Report 5414057-2 (Version None)
Quarter: 2007Q3

REPORT INFORMATION
  Report Type: 
  Country: None (occurrence: None)
  Receive Date: 20070814
  Receipt Date: 20070801
  Transmission Date: 20080115
  Serious: Yes (Other)
  Sender: FDA-Public Use
  Company Number: US-PFIZER INC-2007064351

PATIENT
  Sex: Male

DRUGS (4)
  1. DILANTIN [Suspect]
     Indication: CONVULSION
     Dosage: DAILY DOSE:600MG
  2. NEXIUM [Concomitant]
  3. NABUMETONE [Concomitant]
  4. SYMBYAX [Concomitant]

REACTIONS (1)
  - ANTICONVULSANT DRUG LEVEL DECREASED [None]
